FAERS Safety Report 4541245-X (Version None)
Quarter: 2004Q4

REPORT INFORMATION
  Report Type: 
  Country: None (occurrence: None)
  Receive Date: 20041228
  Receipt Date: 20041217
  Transmission Date: 20050328
  Serious: Yes (Other)
  Sender: FDA-Public Use
  Company Number: 200415499BCC

PATIENT
  Age: 45 Year
  Sex: Male
  Weight: 97.5234 kg

DRUGS (2)
  1. BAYER CHILDRENS ORANGE (ACETYLSALICYCLIC ACID) [Suspect]
     Indication: MYOCARDIAL INFARCTION
     Dosage: 81 MG, QD, ORAL
     Route: 048
     Dates: start: 19921001
  2. BAYER CHILDRENS ORANGE (ACETYLSALICYCLIC ACID) [Suspect]
     Indication: PROPHYLAXIS
     Dosage: 81 MG, QD, ORAL
     Route: 048
     Dates: start: 19921001

REACTIONS (1)
  - RETINAL VEIN OCCLUSION [None]
